FAERS Safety Report 4582397-5 (Version None)
Quarter: 2005Q1

REPORT INFORMATION
  Report Type: 
  Country: None (occurrence: None)
  Receive Date: 20050119
  Receipt Date: 20040419
  Transmission Date: 20050727
  Serious: Yes (Hospitalization)
  Sender: FDA-Public Use
  Company Number: US-JNJFOC-20040305846

PATIENT
  Age: 56 Year
  Sex: Female
  Weight: 75.8 kg

DRUGS (9)
  1. DOXIL [Suspect]
     Indication: OVARIAN CANCER
     Dosage: 75 MG, INTRAVENOUS
     Route: 042
     Dates: start: 20040312, end: 20040312
  2. ENDOCET (OXYCOCET) [Concomitant]
  3. COUMADIN [Concomitant]
  4. PROTONIX [Concomitant]
  5. VICODIN [Concomitant]
  6. EFFEXOR [Concomitant]
  7. PRILOSEC [Concomitant]
  8. COMPAZINE [Concomitant]
  9. ATIVAN [Concomitant]

REACTIONS (3)
  - ABDOMINAL PAIN [None]
  - GASTRITIS EROSIVE [None]
  - VOMITING [None]
